FAERS Safety Report 8599018-7 (Version None)
Quarter: 2012Q3

REPORT INFORMATION
  Report Type: 
  Country: None (occurrence: None)
  Receive Date: 20120816
  Receipt Date: 20120808
  Transmission Date: 20120928
  Serious: Yes (Death, Hospitalization)
  Sender: FDA-Public Use
  Company Number: DE-ROCHE-1101637

PATIENT
  Sex: Male
  Weight: 66 kg

DRUGS (6)
  1. CALCIUMFOLINAT [Concomitant]
     Indication: COLON CANCER
     Route: 042
     Dates: start: 20120131, end: 20120424
  2. FLUOROURACIL [Concomitant]
     Indication: COLON CANCER
     Route: 042
     Dates: start: 20120131, end: 20120424
  3. GRANISETRON [Concomitant]
     Indication: PROPHYLAXIS OF NAUSEA AND VOMITING
     Route: 048
     Dates: start: 20120131, end: 20120502
  4. DEXAMETHASONE SODIUM PHOSPHATE [Concomitant]
     Indication: PROPHYLAXIS OF NAUSEA AND VOMITING
     Route: 042
     Dates: start: 20120131, end: 20120502
  5. OXALIPLATIN [Concomitant]
     Indication: COLON CANCER
     Route: 042
     Dates: start: 20120131, end: 20120424
  6. AVASTIN [Suspect]
     Indication: COLON CANCER
     Route: 042
     Dates: start: 20120131, end: 20120508

REACTIONS (4)
  - METASTASES TO PERITONEUM [None]
  - SEPSIS [None]
  - ILEUS [None]
  - ANASTOMOTIC COMPLICATION [None]
